FAERS Safety Report 17756062 (Version 1)
Quarter: 2020Q2

REPORT INFORMATION
  Report Type: Spontaneous
  Country: GB (occurrence: GB)
  Receive Date: 20200507
  Receipt Date: 20200507
  Transmission Date: 20200714
  Serious: Yes (Hospitalization)
  Sender: FDA-Public Use
  Company Number: GB-PFIZER INC-2020182049

PATIENT
  Age: 40 Year
  Sex: Female
  Weight: 50.8 kg

DRUGS (2)
  1. QUININE [Interacting]
     Active Substance: QUININE
     Dosage: UNK
  2. DOXYCYCLINE MONOHYDRATE [Suspect]
     Active Substance: DOXYCYCLINE
     Dosage: 100 MG
     Route: 048
     Dates: start: 20190901, end: 20191001

REACTIONS (5)
  - Drug interaction [Unknown]
  - Migraine [Recovered/Resolved]
  - Vomiting [Recovered/Resolved]
  - Pain [Recovered/Resolved]
  - Syncope [Recovered/Resolved]
